FAERS Safety Report 15272766 (Version 2)
Quarter: 2019Q1

REPORT INFORMATION
  Report Type: Spontaneous
  Country: DE (occurrence: DE)
  Receive Date: 20180813
  Receipt Date: 20190214
  Transmission Date: 20190417
  Serious: Yes (Hospitalization, Other)
  Sender: FDA-Public Use
  Company Number: DE-OTSUKA-2018_028079

PATIENT
  Sex: Female

DRUGS (1)
  1. SAMSCA [Suspect]
     Active Substance: TOLVAPTAN
     Indication: INAPPROPRIATE ANTIDIURETIC HORMONE SECRETION
     Dosage: 15 MG, (TWICE A WEEK ON MONDAYS AND THURSDAYS)
     Route: 065

REACTIONS (8)
  - Hypertension [Recovered/Resolved]
  - Pneumonitis [Unknown]
  - Inability to afford medication [Unknown]
  - Incorrect product administration duration [Unknown]
  - Hypotension [Not Recovered/Not Resolved]
  - Dehydration [Not Recovered/Not Resolved]
  - Brain stem infarction [Unknown]
  - Anaemia [Not Recovered/Not Resolved]
